FAERS Safety Report 5382104-2 (Version None)
Quarter: 2007Q3

REPORT INFORMATION
  Report Type: 
  Country: None (occurrence: None)
  Receive Date: 20070709
  Receipt Date: 20070627
  Transmission Date: 20080115
  Serious: Yes (Hospitalization)
  Sender: FDA-Public Use
  Company Number: AU-GILEAD-2007-0011600

PATIENT
  Sex: Female
  Weight: 46 kg

DRUGS (9)
  1. AMBRISENTAN [Suspect]
     Indication: PULMONARY HYPERTENSION
     Route: 048
     Dates: start: 20070308, end: 20070308
  2. AMBRISENTAN [Suspect]
     Route: 048
     Dates: start: 20070309, end: 20070401
  3. AMBRISENTAN [Suspect]
     Route: 048
     Dates: start: 20070402
  4. SILDENAFIL CITRATE [Concomitant]
     Route: 048
     Dates: start: 20051201
  5. EPOPROSTENOL SODIUM [Concomitant]
     Dosage: 14/NG/KG/MIN
     Route: 042
     Dates: start: 20060101
  6. CITALOPRAM HYDROBROMIDE [Concomitant]
     Route: 048
     Dates: start: 20061201
  7. ALBUTEROL [Concomitant]
     Route: 055
     Dates: start: 20061201
  8. WARFARIN SODIUM [Concomitant]
     Route: 048
     Dates: start: 20020101
  9. FLUTICASONE/SALMETEROL [Concomitant]
     Route: 048
     Dates: start: 20060101

REACTIONS (3)
  - MUSCLE TIGHTNESS [None]
  - MUSCULAR WEAKNESS [None]
  - TREMOR [None]
